FAERS Safety Report 8222282-0 (Version None)
Quarter: 2012Q1

REPORT INFORMATION
  Report Type: 
  Country: None (occurrence: None)
  Receive Date: 20120320
  Receipt Date: 20120315
  Transmission Date: 20120608
  Serious: Yes (Hospitalization)
  Sender: FDA-Public Use
  Company Number: NL-GLAXOSMITHKLINE-B0754836B

PATIENT
  Sex: Male
  Weight: 94 kg

DRUGS (4)
  1. DOCETAXEL [Suspect]
     Indication: NEOPLASM MALIGNANT
     Dosage: 20MGM2 PER DAY
     Route: 042
     Dates: start: 20111006
  2. FRAGMIN [Concomitant]
     Indication: PULMONARY EMBOLISM
     Dosage: 18000UNIT PER DAY
     Route: 058
     Dates: start: 20101201
  3. VOTRIENT [Suspect]
     Indication: NEOPLASM MALIGNANT
     Dosage: 200MG PER DAY
     Route: 048
     Dates: start: 20110929
  4. METOPROLOL SUCCINATE [Concomitant]
     Indication: ATRIAL FIBRILLATION
     Dosage: 25MG TWICE PER DAY
     Route: 048
     Dates: start: 20111222

REACTIONS (1)
  - ACUTE RESPIRATORY DISTRESS SYNDROME [None]
